FAERS Safety Report 4528847-1 (Version None)
Quarter: 2004Q4

REPORT INFORMATION
  Report Type: 
  Country: None (occurrence: None)
  Receive Date: 20041215
  Receipt Date: 20041215
  Transmission Date: 20050328
  Serious: Yes (Hospitalization)
  Sender: FDA-Public Use
  Company Number: None

PATIENT
  Age: 37 Year
  Sex: Male
  Weight: 101.4 kg

DRUGS (10)
  1. WARFARIN [Suspect]
     Indication: DEEP VEIN THROMBOSIS
     Dosage: 10 MG DAILY EXCEPT 12 MG Q WED AND SAT  CHRONIC
  2. ACETAZOLAMIDE [Concomitant]
  3. FUROSEMIDE [Concomitant]
  4. ASPIRIN [Concomitant]
  5. LANSOPRAZOLE [Concomitant]
  6. CANDESARTAN [Concomitant]
  7. PREDNISOLONE [Concomitant]
  8. CLONIINE [Concomitant]
  9. SENNAS [Concomitant]
  10. FOLIC ACID [Concomitant]

REACTIONS (1)
  - HAEMORRHAGE INTRACRANIAL [None]
